FAERS Safety Report 15311838 (Version 1)
Quarter: 2018Q3

REPORT INFORMATION
  Report Type: Spontaneous
  Country: GB (occurrence: GB)
  Receive Date: 20180823
  Receipt Date: 20180823
  Transmission Date: 20181010
  Serious: Yes (Other)
  Sender: FDA-Public Use
  Company Number: GB-PFIZER INC-2018331953

PATIENT
  Age: 41 Year
  Sex: Female
  Weight: 73 kg

DRUGS (1)
  1. DEPO?PROVERA [Suspect]
     Active Substance: MEDROXYPROGESTERONE ACETATE
     Dosage: 150MG BY IM INJECTION STAT
     Route: 030
     Dates: start: 20160705, end: 20160705

REACTIONS (5)
  - Malaise [Unknown]
  - Injection site abscess [Recovered/Resolved]
  - Injection site inflammation [Recovered/Resolved]
  - Soft tissue infection [Unknown]
  - Injection site pain [Recovered/Resolved]

NARRATIVE: CASE EVENT DATE: 20160705
